FAERS Safety Report 8932752 (Version 4)
Quarter: 2013Q2

REPORT INFORMATION
  Report Type: Spontaneous
  Country: US (occurrence: US)
  Receive Date: 20121128
  Receipt Date: 20130408
  Transmission Date: 20140414
  Serious: No
  Sender: FDA-Public Use
  Company Number: US-009507513-1211USA009879

PATIENT
  Age: 63 Year
  Sex: Male

DRUGS (14)
  1. PEGINTRON [Suspect]
     Indication: HEPATITIS C
     Dosage: 150 MICROGRAM, QW
     Route: 058
     Dates: start: 20121019
  2. PEGINTRON [Suspect]
     Dosage: 0.5 ML, UNK
     Route: 059
     Dates: start: 20120925
  3. RIBAPAK [Suspect]
     Dosage: 600 MG, BID
     Route: 048
  4. VICTRELIS [Suspect]
     Indication: HEPATITIS C
     Dosage: 800 MG, TID
     Route: 048
     Dates: start: 20121119
  5. VICTRELIS [Suspect]
     Dosage: 200 MG, TID
     Route: 048
     Dates: start: 20121121
  6. VICTRELIS [Suspect]
     Dosage: FOUR OF 200 MG, TID
     Route: 048
  7. RIBASPHERE [Suspect]
     Dosage: UNK
     Dates: start: 20121019
  8. RAMIPRIL [Concomitant]
     Dosage: 10 MG, UNK
  9. VICODIN [Concomitant]
     Dosage: 500 MG, UNK
     Route: 048
  10. LEVEMIR [Concomitant]
     Dosage: 100 IU, UNK
  11. SPIRONOLACTONE [Concomitant]
     Dosage: 25 MG, UNK
  12. IBUPROFEN [Concomitant]
  13. INSULIN [Concomitant]
  14. CYMBALTA [Concomitant]

REACTIONS (18)
  - Chromaturia [Not Recovered/Not Resolved]
  - Depression [Not Recovered/Not Resolved]
  - Fatigue [Not Recovered/Not Resolved]
  - Nausea [Not Recovered/Not Resolved]
  - Headache [Not Recovered/Not Resolved]
  - Dyspnoea [Not Recovered/Not Resolved]
  - Pyrexia [Not Recovered/Not Resolved]
  - Chills [Not Recovered/Not Resolved]
  - Pain [Not Recovered/Not Resolved]
  - Dysgeusia [Not Recovered/Not Resolved]
  - Dry eye [Not Recovered/Not Resolved]
  - Visual impairment [Not Recovered/Not Resolved]
  - Diarrhoea [Not Recovered/Not Resolved]
  - Rash [Not Recovered/Not Resolved]
  - Pruritus [Not Recovered/Not Resolved]
  - Suicidal ideation [Not Recovered/Not Resolved]
  - Vomiting [Unknown]
  - Abdominal discomfort [Unknown]
